FAERS Safety Report 5224351-6 (Version None)
Quarter: 2007Q1

REPORT INFORMATION
  Report Type: 
  Country: None (occurrence: None)
  Receive Date: 20070130
  Receipt Date: 20060911
  Transmission Date: 20070707
  Serious: Yes (Other)
  Sender: FDA-Public Use
  Company Number: US-PFIZER INC-2006112460

PATIENT
  Sex: Male
  Weight: 81.2 kg

DRUGS (1)
  1. BEXTRA [Suspect]
     Indication: BACK PAIN

REACTIONS (2)
  - DYSHIDROSIS [None]
  - STEVENS-JOHNSON SYNDROME [None]
